FAERS Safety Report 23042805 (Version 1)
Quarter: 2023Q4

REPORT INFORMATION
  Report Type: Spontaneous
  Country: DE (occurrence: DE)
  Receive Date: 20231009
  Receipt Date: 20231009
  Transmission Date: 20240109
  Serious: Yes (Life-Threatening, Hospitalization)
  Sender: FDA-Public Use
  Company Number: DE-PEI-202300037584

PATIENT
  Age: 6 Year
  Sex: Female
  Weight: 24 kg

DRUGS (1)
  1. TOCILIZUMAB [Suspect]
     Active Substance: TOCILIZUMAB
     Indication: Rheumatoid arthritis
     Dosage: 3 DOSE?PREVIOUS DOSE RECEIVED ON 10/AUG/2023 AND 12/JUL/2023
     Route: 065
     Dates: start: 20230908

REACTIONS (6)
  - Anaemia [Not Recovered/Not Resolved]
  - Dyspnoea [Not Recovered/Not Resolved]
  - Thrombocytopenia [Not Recovered/Not Resolved]
  - Sepsis [Not Recovered/Not Resolved]
  - Respiratory failure [Not Recovered/Not Resolved]
  - Cardiovascular insufficiency [Not Recovered/Not Resolved]

NARRATIVE: CASE EVENT DATE: 20230912
